FAERS Safety Report 7392362-0 (Version None)
Quarter: 2011Q1

REPORT INFORMATION
  Report Type: 
  Country: None (occurrence: None)
  Receive Date: 20110330
  Receipt Date: 20110330
  Transmission Date: 20110831
  Serious: No
  Sender: FDA-Public Use
  Company Number: None

PATIENT
  Age: 39 Year
  Sex: Male

DRUGS (2)
  1. COTRIM [Suspect]
     Dates: start: 20090403, end: 20090423
  2. ATOMOXETINE HCL [Suspect]
     Dates: start: 20090418, end: 20090505

REACTIONS (13)
  - PRURITUS [None]
  - ASPARTATE AMINOTRANSFERASE INCREASED [None]
  - BLOOD BILIRUBIN INCREASED [None]
  - WEIGHT DECREASED [None]
  - LIVER DISORDER [None]
  - PYREXIA [None]
  - CHILLS [None]
  - DECREASED APPETITE [None]
  - ALANINE AMINOTRANSFERASE INCREASED [None]
  - BLOOD ALKALINE PHOSPHATASE INCREASED [None]
  - EOSINOPHILIA [None]
  - HEPATOCELLULAR INJURY [None]
  - IMPAIRED WORK ABILITY [None]
